FAERS Safety Report 7760223-0 (Version None)
Quarter: 2011Q3

REPORT INFORMATION
  Report Type: 
  Country: None (occurrence: None)
  Receive Date: 20110919
  Receipt Date: 20110912
  Transmission Date: 20111222
  Serious: Yes (Other)
  Sender: FDA-Public Use
  Company Number: US-GLAXOSMITHKLINE-A0944163A

PATIENT
  Age: 38 Year
  Sex: Female

DRUGS (2)
  1. MALARONE [Suspect]
     Indication: MALARIA PROPHYLAXIS
     Dosage: 250MG PER DAY
     Route: 048
     Dates: start: 20110101, end: 20110101
  2. NO CONCURRENT MEDICATION [Concomitant]

REACTIONS (2)
  - BLOOD BILIRUBIN UNCONJUGATED INCREASED [None]
  - RETICULOCYTE COUNT INCREASED [None]
